FAERS Safety Report 8016188-X (Version None)
Quarter: 2011Q4

REPORT INFORMATION
  Report Type: 
  Country: None (occurrence: None)
  Receive Date: 20111230
  Receipt Date: 20111220
  Transmission Date: 20120403
  Serious: Yes (Hospitalization)
  Sender: FDA-Public Use
  Company Number: US-ACTELION-A-US2011-51339

PATIENT

DRUGS (2)
  1. CALCIUM CHANNEL BLOCKERS [Concomitant]
  2. TRACLEER [Suspect]
     Indication: PULMONARY ARTERIAL HYPERTENSION
     Dosage: UNK
     Route: 048
     Dates: start: 20070626

REACTIONS (7)
  - ULCER [None]
  - DYSPNOEA [None]
  - SCLERODERMA [None]
  - HYPOTENSION [None]
  - GASTRIC ULCER [None]
  - VOMITING [None]
  - NAUSEA [None]
